FAERS Safety Report 8120516-4 (Version None)
Quarter: 2012Q1

REPORT INFORMATION
  Report Type: 
  Country: None (occurrence: None)
  Receive Date: 20120207
  Receipt Date: 20120202
  Transmission Date: 20120608
  Serious: Yes (Other)
  Sender: FDA-Public Use
  Company Number: JP-ASTRAZENECA-2011SE71537

PATIENT
  Age: 51 Year
  Sex: Male

DRUGS (4)
  1. ACETAMINOPHEN [Concomitant]
     Indication: MIGRAINE
     Route: 048
  2. CANDESARTAN CILEXETIL [Suspect]
     Indication: HYPERTENSION
     Route: 048
  3. BISOPROLOL [Suspect]
     Indication: HYPERTENSION
     Route: 048
  4. ACETYLSALICYLIC ACID SRT [Concomitant]
     Indication: MIGRAINE
     Route: 048

REACTIONS (1)
  - CATARACT [None]
